FAERS Safety Report 5896154-0 (Version None)
Quarter: 2008Q3

REPORT INFORMATION
  Report Type: 
  Country: None (occurrence: None)
  Receive Date: 20080924
  Receipt Date: 20071217
  Transmission Date: 20090109
  Serious: Yes (Other)
  Sender: FDA-Public Use
  Company Number: US-ASTRAZENECA-2007UW03775

PATIENT
  Age: 33 Year
  Sex: Female
  Weight: 70.8 kg

DRUGS (1)
  1. SEROQUEL [Suspect]
     Indication: DEPRESSION
     Route: 048
     Dates: start: 20030823, end: 20041001

REACTIONS (2)
  - GASTROINTESTINAL DISORDER [None]
  - PANCREATITIS [None]
